FAERS Safety Report 4466816-0 (Version None)
Quarter: 2004Q4

REPORT INFORMATION
  Report Type: 
  Country: None (occurrence: None)
  Receive Date: 20041001
  Receipt Date: 20041001
  Transmission Date: 20050328
  Serious: Yes (Life-Threatening, Hospitalization)
  Sender: FDA-Public Use
  Company Number: None

PATIENT
  Sex: Male
  Weight: 86.1834 kg

DRUGS (1)
  1. VIOXX [Suspect]
     Indication: LIMB INJURY
     Dates: start: 20020105, end: 20020205

REACTIONS (3)
  - CARDIAC DISORDER [None]
  - CARDIOSPASM [None]
  - HEART RATE IRREGULAR [None]
